FAERS Safety Report 8505593-0 (Version None)
Quarter: 2012Q3

REPORT INFORMATION
  Report Type: 
  Country: None (occurrence: None)
  Receive Date: 20120712
  Receipt Date: 20120706
  Transmission Date: 20120928
  Serious: Yes (Other)
  Sender: FDA-Public Use
  Company Number: US-JNJFOC-20120610704

PATIENT
  Age: 46 Year
  Sex: Female
  Weight: 86.18 kg

DRUGS (3)
  1. ZYRTEC [Suspect]
     Route: 048
  2. BUSPAR [Concomitant]
     Indication: ANXIETY
  3. ZYRTEC [Suspect]
     Indication: ACNE
     Route: 048
     Dates: start: 20120421, end: 20120421

REACTIONS (3)
  - PANIC ATTACK [None]
  - OFF LABEL USE [None]
  - HYPOAESTHESIA [None]
